FAERS Safety Report 7315324-8 (Version None)
Quarter: 2011Q1

REPORT INFORMATION
  Report Type: 
  Country: None (occurrence: None)
  Receive Date: 20110225
  Receipt Date: 20110222
  Transmission Date: 20110831
  Serious: Yes (Death)
  Sender: FDA-Public Use
  Company Number: PHHY2010JP84661

PATIENT
  Age: 78 Year
  Sex: Male
  Weight: 38 kg

DRUGS (9)
  1. NEORAL [Suspect]
     Indication: GLOMERULONEPHRITIS
     Dosage: 150 MG, QD
     Route: 048
     Dates: end: 20101112
  2. CRESTOR [Concomitant]
     Dosage: 2.5 MG, UNK
     Route: 048
  3. OMEPRAL [Concomitant]
     Dosage: 10 MG, UNK
  4. DIART [Concomitant]
     Dosage: 60 MG, UNK
  5. NORVASC [Concomitant]
     Dosage: 10 MG, UNK
     Route: 048
  6. NEORAL [Suspect]
     Dosage: 100 MG, QD
     Route: 048
     Dates: start: 20101113
  7. MICARDIS [Concomitant]
     Dosage: 80 MG, UNK
  8. MUCOSTA [Concomitant]
     Dosage: 200 MG, UNK
  9. PREDNISOLONE [Concomitant]
     Indication: GLOMERULONEPHRITIS
     Dosage: 10 MG, UNK
     Route: 048
     Dates: start: 20101217

REACTIONS (8)
  - DECREASED APPETITE [None]
  - IMMUNOSUPPRESSANT DRUG LEVEL INCREASED [None]
  - MARASMUS [None]
  - PNEUMONIA [None]
  - ALANINE AMINOTRANSFERASE INCREASED [None]
  - BLOOD UREA INCREASED [None]
  - GENERAL PHYSICAL HEALTH DETERIORATION [None]
  - BLOOD CREATININE INCREASED [None]
